FAERS Safety Report 17517168 (Version 1)
Quarter: 2020Q1

REPORT INFORMATION
  Report Type: Spontaneous
  Country: US (occurrence: US)
  Receive Date: 20200308
  Receipt Date: 20200308
  Transmission Date: 20200409
  Serious: Yes (Other)
  Sender: FDA-Public Use
  Company Number: None

PATIENT
  Age: 46 Year
  Sex: Female

DRUGS (1)
  1. AIMOVIG [Suspect]
     Active Substance: ERENUMAB-AOOE
     Indication: HEMIPLEGIC MIGRAINE
     Route: 058
     Dates: start: 20200225

REACTIONS (8)
  - Chapped lips [None]
  - Pain in jaw [None]
  - Oral pain [None]
  - Pain of skin [None]
  - Restless legs syndrome [None]
  - Oral discomfort [None]
  - Pain [None]
  - Lip dry [None]

NARRATIVE: CASE EVENT DATE: 20200301
